FAERS Safety Report 8906392 (Version 1)
Quarter: 2012Q4

REPORT INFORMATION
  Report Type: Spontaneous
  Country: FI (occurrence: None)
  Receive Date: 20121107
  Receipt Date: 20121107
  Transmission Date: 20130627
  Serious: Yes (Other)
  Sender: FDA-Public Use
  Company Number: 2012P1061298

PATIENT
  Age: 38 Year
  Sex: Female

DRUGS (18)
  1. FUROSEMIDE [Suspect]
     Indication: PRE-ECLAMPSIA
     Dosage: 30 MG ; QD ;  1 DAY
  2. FUROSEMIDE [Suspect]
     Indication: SWELLING OF LEGS
     Dosage: 30 MG ; QD ;  1 DAY
  3. FUROSEMIDE [Suspect]
     Indication: HEART FAILURE
     Dosage: 30 MG ; QD ;  1 DAY
  4. FUROSEMIDE [Suspect]
     Indication: PRE-ECLAMPSIA
     Dosage: 10 MG ; QD ; 1 DAY
  5. FUROSEMIDE [Suspect]
     Indication: SWELLING OF LEGS
     Dosage: 10 MG ; QD ; 1 DAY
  6. FUROSEMIDE [Suspect]
     Indication: HEART FAILURE
     Dosage: 10 MG ; QD ; 1 DAY
  7. FUROSEMIDE [Suspect]
     Indication: PRE-ECLAMPSIA
     Dosage: 40 MG ; QD ; 1 DAY
  8. FUROSEMIDE [Suspect]
     Indication: SWELLING OF LEGS
     Dosage: 40 MG ; QD ; 1 DAY
  9. FUROSEMIDE [Suspect]
     Indication: HEART FAILURE
     Dosage: 40 MG ; QD ; 1 DAY
  10. FUROSEMIDE [Suspect]
     Indication: PRE-ECLAMPSIA
  11. FUROSEMIDE [Suspect]
     Indication: SWELLING OF LEGS
  12. FUROSEMIDE [Suspect]
     Indication: HEART FAILURE
  13. FUROSEMIDE [Suspect]
     Indication: PRE-ECLAMPSIA
  14. FUROSEMIDE [Suspect]
     Indication: SWELLING OF LEGS
  15. FUROSEMIDE [Suspect]
     Indication: HEART FAILURE
  16. LABETALOL [Concomitant]
  17. PIVMECILLINAM HYDROCHLORIDE [Concomitant]
  18. BETAMETHASONE [Concomitant]

REACTIONS (14)
  - Exposure during pregnancy [None]
  - Caesarean section [None]
  - Disseminated intravascular coagulation [None]
  - Haemodialysis [None]
  - Alanine aminotransferase increased [None]
  - Blood pressure increased [None]
  - Abdominal pain upper [None]
  - Visual impairment [None]
  - Abdominal distension [None]
  - Oedema peripheral [None]
  - Abdominal tenderness [None]
  - Anuria [None]
  - Blood creatine increased [None]
  - Placental insufficiency [None]
